FAERS Safety Report 14978692 (Version 1)
Quarter: 2018Q2

REPORT INFORMATION
  Report Type: Spontaneous
  Country: DE (occurrence: DE)
  Receive Date: 20180606
  Receipt Date: 20180606
  Transmission Date: 20180711
  Serious: Yes (Hospitalization, Other)
  Sender: FDA-Public Use
  Company Number: DE-TORRENT-00008560

PATIENT
  Age: 24 Year
  Sex: Male

DRUGS (14)
  1. BUPROPION. [Suspect]
     Active Substance: BUPROPION
     Indication: ANTIDEPRESSANT THERAPY
     Dosage: UNKNOWN
  2. VENLAFAXINE [Suspect]
     Active Substance: VENLAFAXINE HYDROCHLORIDE
     Indication: ANTIDEPRESSANT THERAPY
     Dosage: UNKNOWN
  3. MIRTAZAPIN [Suspect]
     Active Substance: MIRTAZAPINE
     Indication: ANTIDEPRESSANT THERAPY
     Dosage: UNKNOWN
  4. BIPERIDEN HYDROCHLORIDE [Suspect]
     Active Substance: BIPERIDEN HYDROCHLORIDE
     Indication: DYSKINESIA
     Dosage: UNKNOWN
  5. ARIPIPRAZOLE. [Suspect]
     Active Substance: ARIPIPRAZOLE
     Indication: SCHIZOPHRENIFORM DISORDER
     Dosage: UNKNOWN
  6. OLANZAPINE. [Suspect]
     Active Substance: OLANZAPINE
     Indication: SCHIZOPHRENIFORM DISORDER
     Dosage: UNKNOWN
  7. DULOXETINE HYDROCHLORIDE. [Suspect]
     Active Substance: DULOXETINE HYDROCHLORIDE
     Indication: ANTIDEPRESSANT THERAPY
     Dosage: UNKNOWN
  8. QUETIAPINE. [Suspect]
     Active Substance: QUETIAPINE
     Indication: SCHIZOPHRENIFORM DISORDER
     Dosage: UNKNOWN
  9. RISPERIDONE. [Suspect]
     Active Substance: RISPERIDONE
     Indication: SCHIZOPHRENIFORM DISORDER
     Dosage: UNKNOWN
  10. FLUOXETINE [Suspect]
     Active Substance: FLUOXETINE HYDROCHLORIDE
     Indication: ANTIDEPRESSANT THERAPY
     Dosage: UNKNOWN
  11. ZOPICLONE [Suspect]
     Active Substance: ZOPICLONE
     Indication: PRODUCT USED FOR UNKNOWN INDICATION
     Dosage: UNKNOWN
  12. OXAZEPAM. [Suspect]
     Active Substance: OXAZEPAM
     Indication: ANTIDEPRESSANT THERAPY
     Dosage: UNKNOWN
  13. AMISULPRIDE [Suspect]
     Active Substance: AMISULPRIDE
     Indication: SCHIZOPHRENIFORM DISORDER
     Dosage: UNKNOWN
  14. PROMETHAZINE HYDROCHLORIDE. [Suspect]
     Active Substance: PROMETHAZINE HYDROCHLORIDE
     Indication: SCHIZOPHRENIFORM DISORDER
     Dosage: UNKNOWN

REACTIONS (4)
  - Myoclonus [Not Recovered/Not Resolved]
  - Treatment failure [Unknown]
  - Drug intolerance [Unknown]
  - Condition aggravated [Unknown]
